FAERS Safety Report 5040537-8 (Version None)
Quarter: 2006Q2

REPORT INFORMATION
  Report Type: 
  Country: None (occurrence: None)
  Receive Date: 20060630
  Receipt Date: 20060516
  Transmission Date: 20061013
  Serious: Yes (Hospitalization)
  Sender: FDA-Public Use
  Company Number: FR-ROCHE-448434

PATIENT
  Age: 64 Year
  Sex: Female
  Weight: 70 kg

DRUGS (3)
  1. PEGASYS [Suspect]
     Indication: DRUG USE FOR UNKNOWN INDICATION
     Route: 058
     Dates: start: 20050405, end: 20050426
  2. PEGASYS [Suspect]
     Route: 058
     Dates: start: 20050427, end: 20051227
  3. COPEGUS [Concomitant]
     Route: 048
     Dates: start: 20050405, end: 20050426

REACTIONS (5)
  - BLOOD CREATINE PHOSPHOKINASE INCREASED [None]
  - HYPOVITAMINOSIS [None]
  - MYOSITIS [None]
  - PULMONARY FIBROSIS [None]
  - WEIGHT DECREASED [None]
